FAERS Safety Report 4607822-2 (Version None)
Quarter: 2005Q1

REPORT INFORMATION
  Report Type: 
  Country: None (occurrence: None)
  Receive Date: 20050314
  Receipt Date: 20050308
  Transmission Date: 20050727
  Serious: Yes (Other)
  Sender: FDA-Public Use
  Company Number: US-GLAXOSMITHKLINE-A0548711A

PATIENT
  Age: 59 Year
  Sex: Female
  Weight: 63 kg

DRUGS (3)
  1. AQUAFRESH TOOTHPASTE [Suspect]
     Indication: DENTAL CLEANING
  2. AQUAFRESH ALL WITH TARTAR CONTROL TOOTHPASTE TUBE [Suspect]
     Indication: DENTAL CLEANING
     Dates: start: 20050307, end: 20050307
  3. HORMONE REPLACEMENT [Suspect]

REACTIONS (6)
  - BREAST CANCER [None]
  - CHEILITIS [None]
  - ORAL DISCOMFORT [None]
  - ORAL MUCOSAL EXFOLIATION [None]
  - SWELLING FACE [None]
  - THERMAL BURN [None]
